FAERS Safety Report 19227287 (Version 5)
Quarter: 2022Q2

REPORT INFORMATION
  Report Type: Report from Study
  Country: DO (occurrence: DO)
  Receive Date: 20210506
  Receipt Date: 20220404
  Transmission Date: 20220721
  Serious: Yes (Other)
  Sender: FDA-Public Use
  Company Number: NVSC2020DO015476

PATIENT
  Age: 22 Year
  Sex: Male

DRUGS (2)
  1. GILENYA [Interacting]
     Active Substance: FINGOLIMOD HYDROCHLORIDE
     Indication: Relapsing-remitting multiple sclerosis
     Dosage: 0.5 MG, QD
     Route: 048
     Dates: start: 20200115
  2. GILENYA [Interacting]
     Active Substance: FINGOLIMOD HYDROCHLORIDE
     Dosage: 0.5 MG, QD
     Route: 048
     Dates: start: 20220207

REACTIONS (11)
  - Neutropenia [Unknown]
  - Hepatitis [Unknown]
  - Blood bilirubin increased [Unknown]
  - Nephritis [Unknown]
  - Portal vein dilatation [Unknown]
  - Amoeba test positive [Unknown]
  - Lymphocyte count increased [Unknown]
  - Atrial pressure [Unknown]
  - Gait disturbance [Unknown]
  - Underweight [Unknown]
  - Heart rate decreased [Unknown]

NARRATIVE: CASE EVENT DATE: 20200115
